FAERS Safety Report 4978084-1 (Version None)
Quarter: 2006Q2

REPORT INFORMATION
  Report Type: 
  Country: None (occurrence: None)
  Receive Date: 20060417
  Receipt Date: 20060405
  Transmission Date: 20061013
  Serious: Yes (Other)
  Sender: FDA-Public Use
  Company Number: 163-20785-06040390

PATIENT
  Sex: Male

DRUGS (1)
  1. THALIDOMIDE (THALIDOMIDE) (CAPSULES) [Suspect]
     Indication: MULTIPLE MYELOMA
     Dosage: 50-250 MG, DAILY, ORAL
     Route: 048
     Dates: start: 20040424, end: 20040101

REACTIONS (1)
  - MYELODYSPLASTIC SYNDROME [None]
